FAERS Safety Report 12700431 (Version 1)
Quarter: 2016Q3

REPORT INFORMATION
  Report Type: Spontaneous
  Country: US (occurrence: US)
  Receive Date: 20160830
  Receipt Date: 20160830
  Transmission Date: 20161109
  Serious: No
  Sender: FDA-Public Use
  Company Number: US-SA-2016SA008770

PATIENT
  Age: 34 Year
  Sex: Male
  Weight: 76.2 kg

DRUGS (16)
  1. HEPARIN [Concomitant]
     Active Substance: HEPARIN SODIUM
     Indication: FLUSHING
     Dosage: 100UN/ML
     Dates: start: 20150920
  2. NORTRIPTYLINE [Concomitant]
     Active Substance: NORTRIPTYLINE
     Dosage: 2 CAPS AT BED TIME
     Dates: start: 20150909
  3. FABRAZYME [Suspect]
     Active Substance: AGALSIDASE BETA
     Indication: FABRY^S DISEASE
     Route: 041
     Dates: start: 20100401
  4. FABRAZYME [Suspect]
     Active Substance: AGALSIDASE BETA
     Indication: FABRY^S DISEASE
     Route: 041
     Dates: start: 20100401
  5. DIPHENHYDRAMINE. [Concomitant]
     Active Substance: DIPHENHYDRAMINE
     Indication: PREMEDICATION
     Dosage: AS DIRECTED
     Dates: start: 20150920
  6. EPIPEN [Concomitant]
     Active Substance: EPINEPHRINE
     Indication: ANAPHYLACTIC REACTION
     Route: 030
     Dates: start: 20150920
  7. SOLU-CORTEF [Concomitant]
     Active Substance: HYDROCORTISONE SODIUM SUCCINATE
     Indication: ANAPHYLACTIC REACTION
     Route: 042
     Dates: start: 20150920
  8. NORMAL SALINE [Concomitant]
     Active Substance: SODIUM CHLORIDE
     Dosage: AS DIRECTED
     Route: 042
     Dates: start: 20150920
  9. VERAPAMIL [Concomitant]
     Active Substance: VERAPAMIL HYDROCHLORIDE
     Dosage: 1 TAB
     Dates: start: 20150909
  10. FIORICET [Concomitant]
     Active Substance: ACETAMINOPHEN\BUTALBITAL\CAFFEINE
     Dosage: AS DIRECTED
     Dates: start: 20120515
  11. IBUPROFEN. [Concomitant]
     Active Substance: IBUPROFEN
     Indication: PREMEDICATION
     Dosage: AS DIRECTED
     Dates: start: 20150920
  12. L-M-X [Concomitant]
     Indication: PREMEDICATION
     Dosage: 4 %TOP PRIOR TO INFUSION
     Dates: start: 20150920
  13. TEGRETOL [Concomitant]
     Active Substance: CARBAMAZEPINE
     Dosage: 2 TAB IN THE AM AND PM
     Dates: start: 20150909
  14. PANTOPRAZOLE [Concomitant]
     Active Substance: PANTOPRAZOLE SODIUM
     Dosage: 1 TAB DAILY
     Dates: start: 20150909
  15. DICLOFENAC [Concomitant]
     Active Substance: DICLOFENAC
     Dates: start: 20120515
  16. PREDNISONE. [Concomitant]
     Active Substance: PREDNISONE
     Indication: PREMEDICATION
     Dosage: 3 TABS AS DIRECTED
     Dates: start: 20150909

REACTIONS (1)
  - Malaise [Not Recovered/Not Resolved]
